FAERS Safety Report 7856930-1 (Version None)
Quarter: 2011Q4

REPORT INFORMATION
  Report Type: 
  Country: None (occurrence: None)
  Receive Date: 20111027
  Receipt Date: 20111014
  Transmission Date: 20120403
  Serious: Yes (Other)
  Sender: FDA-Public Use
  Company Number: DE-AMGEN-DEUSP2011053771

PATIENT
  Age: 44 Year
  Sex: Male
  Weight: 86 kg

DRUGS (1)
  1. ENBREL [Suspect]
     Indication: ANKYLOSING SPONDYLITIS
     Dosage: 25 MG, 2X/WEEK
     Dates: start: 20050601

REACTIONS (6)
  - IRITIS [None]
  - UVEITIS [None]
  - CONJUNCTIVITIS [None]
  - EYELID OEDEMA [None]
  - HYPERURICAEMIA [None]
  - SENSATION OF FOREIGN BODY [None]
